FAERS Safety Report 17176466 (Version 3)
Quarter: 2019Q4

REPORT INFORMATION
  Report Type: Spontaneous
  Country: US (occurrence: US)
  Receive Date: 20191219
  Receipt Date: 20191227
  Transmission Date: 20200122
  Serious: No
  Sender: FDA-Public Use
  Company Number: US-JNJFOC-20191217588

PATIENT
  Sex: Male
  Weight: 83.99 kg

DRUGS (1)
  1. MENS ROGAINE EXTRA STRENGTH [Suspect]
     Active Substance: MINOXIDIL
     Indication: ALOPECIA
     Dosage: DOSE AND FREQUENCY: TWICE DAILY AND HALF OF CAPFUL?THE PRODUCT WAS LAST ADMINISTERED ON 09-DEC-2019.
     Route: 061
     Dates: start: 2018

REACTIONS (1)
  - Drug ineffective [Unknown]
